FAERS Safety Report 5755072-9 (Version None)
Quarter: 2008Q2

REPORT INFORMATION
  Report Type: 
  Country: None (occurrence: None)
  Receive Date: 20080528
  Receipt Date: 20080528
  Transmission Date: 20081010
  Serious: No
  Sender: FDA-Public Use
  Company Number: None

PATIENT

DRUGS (1)
  1. SINGULAIR [Suspect]

REACTIONS (10)
  - ABDOMINAL PAIN UPPER [None]
  - AGGRESSION [None]
  - AMNESIA [None]
  - ANHEDONIA [None]
  - CONVULSION [None]
  - DEPRESSION [None]
  - FEELING ABNORMAL [None]
  - GASTROOESOPHAGEAL REFLUX DISEASE [None]
  - MOOD SWINGS [None]
  - PAIN IN EXTREMITY [None]
